APPROVED DRUG PRODUCT: CLOBAZAM
Active Ingredient: CLOBAZAM
Strength: 10MG
Dosage Form/Route: TABLET;ORAL
Application: A212398 | Product #001
Applicant: ACCORD HEALTHCARE INC
Approved: May 23, 2019 | RLD: No | RS: No | Type: DISCN